FAERS Safety Report 19825721 (Version 1)
Quarter: 2021Q3

REPORT INFORMATION
  Report Type: Spontaneous
  Country: NL (occurrence: NL)
  Receive Date: 20210914
  Receipt Date: 20210914
  Transmission Date: 20211014
  Serious: Yes (Other)
  Sender: FDA-Public Use
  Company Number: NL-TEVA-2021-NL-1951175

PATIENT
  Age: 76 Year
  Sex: Male
  Weight: 89 kg

DRUGS (3)
  1. AMOXICILLINE CAPSULE 500MG / BRAND NAME NOT SPECIFIED [Suspect]
     Active Substance: AMOXICILLIN
     Indication: PRODUCT USED FOR UNKNOWN INDICATION
     Dosage: 3 DAY , UNIT DOSE : 500 MG
     Dates: start: 202108, end: 20210822
  2. METFORMINE HYDROCHLORIDE / BRAND NAME NOT SPECIFIED [Concomitant]
     Dosage: THERAPY START DATE AND END DATE : ASKU
  3. INSULINE [Concomitant]
     Active Substance: INSULIN NOS
     Dosage: THERAPY START DATE AND END DATE : ASKU

REACTIONS (1)
  - Hypoglycaemia [Not Recovered/Not Resolved]

NARRATIVE: CASE EVENT DATE: 20210820
